FAERS Safety Report 23322364 (Version 1)
Quarter: 2023Q4

REPORT INFORMATION
  Report Type: Spontaneous
  Country: US (occurrence: None)
  Receive Date: 20231220
  Receipt Date: 20231220
  Transmission Date: 20240109
  Serious: Yes (Hospitalization)
  Sender: FDA-Public Use
  Company Number: None

PATIENT
  Sex: Male

DRUGS (4)
  1. TALTZ [Suspect]
     Active Substance: IXEKIZUMAB
     Indication: Psoriasis
     Dosage: OTHER FREQUENCY : WEEK 4,6,8, AND 10;?
     Route: 058
     Dates: start: 20231104
  2. COSENTYX [Concomitant]
     Active Substance: SECUKINUMAB
  3. INGREZZA [Concomitant]
     Active Substance: VALBENAZINE
  4. ZOLOFT [Concomitant]
     Active Substance: SERTRALINE HYDROCHLORIDE

REACTIONS (3)
  - Fall [None]
  - Shoulder fracture [None]
  - Rib fracture [None]
